FAERS Safety Report 15557460 (Version 2)
Quarter: 2018Q4

REPORT INFORMATION
  Report Type: Spontaneous
  Country: US (occurrence: US)
  Receive Date: 20181026
  Receipt Date: 20181128
  Transmission Date: 20190205
  Serious: Yes (Hospitalization)
  Sender: FDA-Public Use
  Company Number: US-ENDO PHARMACEUTICALS INC-2018-042526

PATIENT
  Age: 63 Year
  Sex: Male
  Weight: 113.38 kg

DRUGS (1)
  1. TESTIM [Suspect]
     Active Substance: TESTOSTERONE
     Indication: ANDROGEN REPLACEMENT THERAPY
     Dosage: UNK UNKNOWN, UNKNOWN
     Route: 065
     Dates: start: 201203, end: 201309

REACTIONS (3)
  - Depression [Unknown]
  - Ischaemic stroke [Unknown]
  - Headache [Unknown]

NARRATIVE: CASE EVENT DATE: 20131002
